FAERS Safety Report 24959435 (Version 1)
Quarter: 2025Q1

REPORT INFORMATION
  Report Type: Report from Study
  Country: US (occurrence: US)
  Receive Date: 20250212
  Receipt Date: 20250212
  Transmission Date: 20250409
  Serious: Yes (Hospitalization)
  Sender: NOVARTIS
  Company Number: US-002147023-NVSC2025US023539

PATIENT
  Age: 80 Year
  Sex: Female

DRUGS (1)
  1. LEQVIO [Suspect]
     Active Substance: INCLISIRAN SODIUM
     Indication: Product used for unknown indication
     Route: 058
     Dates: start: 20241001

REACTIONS (3)
  - Hypersensitivity [Unknown]
  - Urticaria [Unknown]
  - Swelling [Unknown]

NARRATIVE: CASE EVENT DATE: 20241229
